FAERS Safety Report 8719834 (Version 3)
Quarter: 2013Q1

REPORT INFORMATION
  Report Type: Spontaneous
  Country: US (occurrence: US)
  Receive Date: 20120813
  Receipt Date: 20130123
  Transmission Date: 20140127
  Serious: Yes (Other)
  Sender: FDA-Public Use
  Company Number: US-BAYER-2012-078600

PATIENT
  Age: 22 Year
  Sex: Female
  Weight: 52.15 kg

DRUGS (4)
  1. YAZ [Suspect]
     Indication: CONTRACEPTION
     Dosage: UNK
     Dates: start: 2005, end: 2007
  2. YASMIN [Suspect]
     Indication: CONTRACEPTION
     Dosage: UNK
     Dates: start: 2007
  3. NSAID^S [Concomitant]
     Indication: HEADACHE
  4. ZOLOFT [Concomitant]
     Indication: ANXIETY
     Dosage: UNK
     Dates: start: 2007

REACTIONS (6)
  - Deep vein thrombosis [None]
  - Pain [None]
  - Injury [None]
  - Fear of disease [None]
  - Pain [None]
  - Chest pain [None]
